FAERS Safety Report 9845768 (Version 1)
Quarter: 2014Q1

REPORT INFORMATION
  Report Type: Spontaneous
  Country: US (occurrence: None)
  Receive Date: 20140122
  Receipt Date: 20140122
  Transmission Date: 20141002
  Serious: Yes (Death)
  Sender: FDA-Public Use
  Company Number: 1401-0083

PATIENT
  Sex: 0

DRUGS (1)
  1. EYLEA [Suspect]
     Dosage: INTRAVITREAL
     Dates: start: 20130530

REACTIONS (1)
  - Death [None]
